FAERS Safety Report 13581480 (Version 1)
Quarter: 2017Q2

REPORT INFORMATION
  Report Type: Spontaneous
  Country: CH (occurrence: CH)
  Receive Date: 20170525
  Receipt Date: 20170525
  Transmission Date: 20170830
  Serious: Yes (Hospitalization, Other)
  Sender: FDA-Public Use
  Company Number: CH-GLAXOSMITHKLINE-CH2017GSK078114

PATIENT
  Age: 68 Year
  Sex: Male

DRUGS (11)
  1. PREDNISONE. [Suspect]
     Active Substance: PREDNISONE
     Indication: PRODUCT USED FOR UNKNOWN INDICATION
     Dosage: 20 MG, QD
     Route: 048
     Dates: start: 20170417, end: 20170501
  2. NEBILET [Concomitant]
     Active Substance: NEBIVOLOL
  3. NEXIUM I.V. [Suspect]
     Active Substance: ESOMEPRAZOLE SODIUM
     Indication: PRODUCT USED FOR UNKNOWN INDICATION
     Dosage: 40 MG, QD
     Route: 048
     Dates: start: 20170417, end: 20170501
  4. ASPIRIN CARDIO [Concomitant]
     Active Substance: ASPIRIN
  5. MESTINON [Concomitant]
     Active Substance: PYRIDOSTIGMINE BROMIDE
     Dosage: UNK
     Dates: start: 201607, end: 20170501
  6. IMUREK [Suspect]
     Active Substance: AZATHIOPRINE
     Indication: PRODUCT USED FOR UNKNOWN INDICATION
     Dosage: 50 MG, BID
     Route: 048
     Dates: start: 20170417, end: 20170501
  7. NOVORAPID [Concomitant]
     Active Substance: INSULIN ASPART
  8. AMLODIPINE BESILATE + OLMESARTAN MEDOXOMILO (VASCORD) [Concomitant]
  9. INEGY [Concomitant]
     Active Substance: EZETIMIBE\SIMVASTATIN
     Dosage: 40/5/12.5 OT
  10. VOLTAREN [Suspect]
     Active Substance: DICLOFENAC SODIUM
     Indication: PRODUCT USED FOR UNKNOWN INDICATION
     Dosage: 50 MG, BID
     Route: 048
     Dates: start: 20170428, end: 20170430
  11. TRESIBA [Concomitant]
     Active Substance: INSULIN DEGLUDEC

REACTIONS (9)
  - Rhinitis [Recovering/Resolving]
  - Liver injury [Recovering/Resolving]
  - Pyrexia [Recovering/Resolving]
  - Arthralgia [Recovering/Resolving]
  - Dysphagia [Recovering/Resolving]
  - Rash generalised [Recovering/Resolving]
  - Asthenia [Recovering/Resolving]
  - Dysphonia [Recovering/Resolving]
  - Intestinal transit time decreased [Recovering/Resolving]

NARRATIVE: CASE EVENT DATE: 20170420
